FAERS Safety Report 9682496 (Version 1)
Quarter: 2013Q4

REPORT INFORMATION
  Report Type: Report from Study
  Country: US (occurrence: US)
  Receive Date: 20131112
  Receipt Date: 20131112
  Transmission Date: 20140711
  Serious: Yes (Other)
  Sender: FDA-Public Use
  Company Number: US-ROCHE-1278989

PATIENT
  Age: 49 Year
  Sex: Female
  Weight: 67.19 kg

DRUGS (19)
  1. HERCEPTIN [Suspect]
     Indication: PRODUCT USED FOR UNKNOWN INDICATION
     Route: 042
     Dates: end: 20110927
  2. HERCEPTIN [Suspect]
     Route: 042
     Dates: start: 201201
  3. HERCEPTIN [Suspect]
     Route: 042
     Dates: start: 20121228
  4. BEVACIZUMAB [Suspect]
     Indication: PRODUCT USED FOR UNKNOWN INDICATION
     Route: 042
     Dates: start: 201004, end: 201005
  5. CAPECITABINE [Suspect]
     Indication: PRODUCT USED FOR UNKNOWN INDICATION
     Route: 048
     Dates: end: 20110927
  6. BENADRYL (UNITED STATES) [Suspect]
     Indication: PRODUCT USED FOR UNKNOWN INDICATION
     Dosage: 25 MG IN NS 50 ML
     Route: 065
     Dates: start: 20121228
  7. ABRAXANE [Concomitant]
     Route: 065
     Dates: start: 201004, end: 201005
  8. ZOMETA [Concomitant]
     Dosage: OVER 30 MINUTES
     Route: 065
  9. NAVELBINE [Concomitant]
     Dosage: X 1
     Route: 065
  10. ERIBULIN [Concomitant]
  11. TYLENOL [Concomitant]
     Route: 048
     Dates: start: 20121228
  12. CLARITIN [Concomitant]
     Route: 065
     Dates: start: 20121227
  13. LOVENOX [Concomitant]
     Route: 065
  14. CELEBREX [Concomitant]
     Route: 065
  15. NEURONTIN (UNITED STATES) [Concomitant]
     Dosage: QHS
     Route: 065
  16. EFFEXOR [Concomitant]
     Route: 048
  17. TRAZODONE [Concomitant]
     Dosage: AT BEDTIME (HS)
     Route: 048
  18. GEMCITABINE HYDROCHLORIDE [Concomitant]
     Route: 065
     Dates: start: 201007, end: 201106
  19. ZOLPIDEM TARTRATE [Concomitant]
     Route: 065

REACTIONS (9)
  - Cardiotoxicity [Unknown]
  - Feeling jittery [Unknown]
  - Dyskinesia [Unknown]
  - Adverse drug reaction [Unknown]
  - Diarrhoea [Recovered/Resolved]
  - Rash vesicular [Recovered/Resolved]
  - Disease progression [Unknown]
  - Disease recurrence [Unknown]
  - Fatigue [Unknown]
